FAERS Safety Report 11666617 (Version 3)
Quarter: 2015Q4

REPORT INFORMATION
  Report Type: Report from Study
  Country: US (occurrence: US)
  Receive Date: 20151027
  Receipt Date: 20151029
  Transmission Date: 20160304
  Serious: Yes (Hospitalization, Other)
  Sender: FDA-Public Use
  Company Number: PHHY2013US007417

PATIENT
  Age: 6 Year
  Sex: Male

DRUGS (4)
  1. EXJADE [Suspect]
     Active Substance: DEFERASIROX
     Indication: HAEMOSIDEROSIS
     Dosage: 250 MG, UNK
     Route: 065
     Dates: start: 20061127
  2. MONTELUKAST [Concomitant]
     Active Substance: MONTELUKAST SODIUM
     Indication: ASTHMA
     Dosage: 4 MG, UNK
     Dates: start: 20040902, end: 20080307
  3. ALBUTEROL. [Concomitant]
     Active Substance: ALBUTEROL
     Indication: ASTHMA
     Dosage: 2 DF, UNK
     Dates: start: 20040902, end: 20080307
  4. EXJADE [Suspect]
     Active Substance: DEFERASIROX
     Dosage: 500 UNK, UNK
     Route: 065
     Dates: end: 20060526

REACTIONS (2)
  - Pyrexia [Recovered/Resolved]
  - Anaemic hypoxia [Recovered/Resolved]

NARRATIVE: CASE EVENT DATE: 20090106
